FAERS Safety Report 18747950 (Version 1)
Quarter: 2021Q1

REPORT INFORMATION
  Report Type: Report from Study
  Country: BR (occurrence: BR)
  Receive Date: 20210115
  Receipt Date: 20210115
  Transmission Date: 20210419
  Serious: Yes (Other)
  Sender: FDA-Public Use
  Company Number: BR-UCBSA-2021001507

PATIENT
  Age: 65 Year
  Sex: Female
  Weight: 81 kg

DRUGS (3)
  1. CERTOLIZUMAB PEGOL [Suspect]
     Active Substance: CERTOLIZUMAB PEGOL
     Indication: RHEUMATOID ARTHRITIS
     Dosage: 400 MILLIGRAM, EV 2 WEEKS(QOW)
     Route: 058
     Dates: end: 20201112
  2. TECNOMET [METHOTREXATE] [Concomitant]
     Active Substance: METHOTREXATE
     Indication: RHEUMATOID ARTHRITIS
     Dosage: 3 DOSAGE FORM, WEEKLY (QW)
     Route: 048
  3. OSTEONIL [HYALURONATE SODIUM] [Concomitant]
     Indication: CHONDROPATHY
     Dosage: 3 DOSAGE FORM, UNK
     Dates: start: 202009, end: 202011

REACTIONS (3)
  - Blood pressure increased [Recovered/Resolved]
  - Pain in extremity [Recovering/Resolving]
  - Joint injury [Not Recovered/Not Resolved]

NARRATIVE: CASE EVENT DATE: 20201126
